FAERS Safety Report 6123071-3 (Version None)
Quarter: 2009Q1

REPORT INFORMATION
  Report Type: 
  Country: None (occurrence: None)
  Receive Date: 20090318
  Receipt Date: 20090304
  Transmission Date: 20090719
  Serious: Yes (Other)
  Sender: FDA-Public Use
  Company Number: US-PFIZER INC-2009172058

PATIENT
  Sex: Female
  Weight: 61.224 kg

DRUGS (2)
  1. XALATAN [Suspect]
     Indication: GLAUCOMA
     Dosage: UNK
  2. DIGOXIN [Concomitant]
     Indication: CARDIAC DISORDER
     Dosage: UNK

REACTIONS (3)
  - CATARACT [None]
  - DRUG INEFFECTIVE [None]
  - EYE OPERATION [None]
